FAERS Safety Report 14020632 (Version 4)
Quarter: 2018Q3

REPORT INFORMATION
  Report Type: Spontaneous
  Country: JP (occurrence: JP)
  Receive Date: 20170928
  Receipt Date: 20180725
  Transmission Date: 20181010
  Serious: Yes (Death, Disabling, Other)
  Sender: FDA-Public Use
  Company Number: JP-LUNDBECK-DKLU2035266

PATIENT
  Age: 10 Month
  Sex: Male

DRUGS (17)
  1. MYSTAN [Concomitant]
     Active Substance: CLOBAZAM
     Indication: INFANTILE SPASMS
     Route: 065
     Dates: start: 20170724, end: 20170909
  2. ESCRE [Concomitant]
     Indication: PROPHYLAXIS
     Route: 065
     Dates: start: 20170510, end: 20170510
  3. SABRIL [Suspect]
     Active Substance: VIGABATRIN
     Route: 048
     Dates: start: 20170712, end: 20170718
  4. SABRIL [Suspect]
     Active Substance: VIGABATRIN
     Route: 048
     Dates: start: 20170418, end: 20170424
  5. SABRIL [Suspect]
     Active Substance: VIGABATRIN
     Route: 048
     Dates: start: 20170626, end: 20170704
  6. SABRIL [Suspect]
     Active Substance: VIGABATRIN
     Route: 048
     Dates: start: 20170705, end: 20170711
  7. SABRIL [Suspect]
     Active Substance: VIGABATRIN
     Route: 048
     Dates: start: 20170425, end: 20170501
  8. SABRIL [Suspect]
     Active Substance: VIGABATRIN
     Route: 048
     Dates: start: 20170502, end: 20170508
  9. SABRIL [Suspect]
     Active Substance: VIGABATRIN
     Route: 048
     Dates: start: 20170509, end: 20170618
  10. SABRIL [Suspect]
     Active Substance: VIGABATRIN
     Route: 048
     Dates: start: 20170619, end: 20170625
  11. SABRIL [Suspect]
     Active Substance: VIGABATRIN
     Indication: INFANTILE SPASMS
     Route: 048
     Dates: start: 20170411, end: 20170417
  12. BIOFERMIN [Concomitant]
     Active Substance: BACILLUS SUBTILIS\LACTOBACILLUS ACIDOPHILUS\STREPTOCOCCUS FAECAIS
     Indication: DEVELOPMENTAL DELAY
     Route: 065
     Dates: start: 20170401, end: 20170405
  13. TRICLORYL [Concomitant]
     Active Substance: TRICLOFOS SODIUM
     Indication: PROPHYLAXIS
     Route: 065
     Dates: start: 20170404, end: 20170704
  14. EXCEGRAN [Concomitant]
     Active Substance: ZONISAMIDE
     Indication: INFANTILE SPASMS
     Route: 065
  15. E KEPPRA [Concomitant]
     Active Substance: LEVETIRACETAM
     Indication: INFANTILE SPASMS
     Route: 065
     Dates: start: 20170519, end: 20170903
  16. MYDRIN P [Concomitant]
     Active Substance: PHENYLEPHRINE HYDROCHLORIDE\TROPICAMIDE
     Indication: PROPHYLAXIS
     Route: 065
     Dates: start: 20170404, end: 20170704
  17. TOPINA [Concomitant]
     Active Substance: TOPIRAMATE
     Indication: INFANTILE SPASMS
     Route: 065
     Dates: start: 20170828, end: 20170909

REACTIONS (6)
  - Retinogram abnormal [Unknown]
  - Constipation [Recovered/Resolved]
  - Pharyngitis [Recovered/Resolved]
  - Hypophagia [Not Recovered/Not Resolved]
  - Cardio-respiratory arrest [Fatal]
  - Eczema [Recovering/Resolving]

NARRATIVE: CASE EVENT DATE: 20170412
